FAERS Safety Report 10224130 (Version 1)
Quarter: 2014Q2

REPORT INFORMATION
  Report Type: Spontaneous
  Country: ES (occurrence: ES)
  Receive Date: 20140609
  Receipt Date: 20140609
  Transmission Date: 20141212
  Serious: Yes (Other)
  Sender: FDA-Public Use
  Company Number: PHHY2014ES066134

PATIENT
  Age: 55 Year
  Sex: Male

DRUGS (5)
  1. CO-VALS [Suspect]
     Indication: HYPERTENSION
     Dosage: 1 DF, QD
     Route: 048
  2. PLETAL [Suspect]
     Indication: INTERMITTENT CLAUDICATION
     Dosage: 1 DF, UNK
     Route: 048
     Dates: start: 20140419, end: 20140427
  3. OPIREN [Suspect]
     Dosage: 1 DF, UNK
  4. ADIRO [Concomitant]
     Dosage: UNK UKN, UNK
  5. ZARATOR//ATORVASTATIN CALCIUM [Concomitant]
     Dosage: UNK UKN, UNK

REACTIONS (2)
  - Sense of oppression [Recovered/Resolved]
  - Ventricular tachycardia [Recovered/Resolved]
